FAERS Safety Report 4727285-6 (Version None)
Quarter: 2005Q3

REPORT INFORMATION
  Report Type: 
  Country: None (occurrence: None)
  Receive Date: 20050727
  Receipt Date: 20050727
  Transmission Date: 20060218
  Serious: No
  Sender: FDA-Public Use
  Company Number: None

PATIENT
  Age: 66 Year
  Sex: Male
  Weight: 129.7 kg

DRUGS (17)
  1. LORAZEPAM [Suspect]
     Indication: AGITATION
     Dosage: 3MG, 1MG TID, ORAL
     Route: 048
  2. BUSPIRONE HCL [Concomitant]
  3. OLANZAPINE [Concomitant]
  4. ALOH/MGOH/SIMTH XTRA STR [Concomitant]
  5. FERROUS SULFATE TAB [Concomitant]
  6. POTASSIUM CHLORIDE [Concomitant]
  7. FUROSEMIDE [Concomitant]
  8. METOPROLOL TARTRATE [Concomitant]
  9. ARIPIRAZOLE [Concomitant]
  10. THIAMINE [Concomitant]
  11. FOLIC ACID [Concomitant]
  12. CHLORDIAZEPOXIDE [Concomitant]
  13. GATIFLOXACIN [Concomitant]
  14. DILTIAZEM [Concomitant]
  15. CAPTOPRIL [Concomitant]
  16. IPRATROPIUM BROMIDE [Concomitant]
  17. ASPIRIN [Concomitant]

REACTIONS (1)
  - UNEVALUABLE EVENT [None]
